APPROVED DRUG PRODUCT: BUTALBITAL, ACETAMINOPHEN AND CAFFEINE
Active Ingredient: ACETAMINOPHEN; BUTALBITAL; CAFFEINE
Strength: 325MG;50MG;40MG
Dosage Form/Route: TABLET;ORAL
Application: A088616 | Product #001 | TE Code: AA
Applicant: ACTAVIS LABORATORIES UT INC
Approved: Nov 9, 1984 | RLD: Yes | RS: No | Type: RX